FAERS Safety Report 15534214 (Version 1)
Quarter: 2018Q4

REPORT INFORMATION
  Report Type: Spontaneous
  Country: US (occurrence: US)
  Receive Date: 20181019
  Receipt Date: 20181019
  Transmission Date: 20190205
  Serious: No
  Sender: FDA-Public Use
  Company Number: None

PATIENT
  Age: 39 Year
  Sex: Male
  Weight: 157.5 kg

DRUGS (10)
  1. MULTIVITAMIN [Concomitant]
     Active Substance: VITAMINS
  2. LISINOPRIL. [Concomitant]
     Active Substance: LISINOPRIL
  3. TESTOSTERONE. [Concomitant]
     Active Substance: TESTOSTERONE
  4. ZOFRAN [Concomitant]
     Active Substance: ONDANSETRON HYDROCHLORIDE
  5. ANTIFUNGAL (MICONAZOLE NITRATE) [Suspect]
     Active Substance: MICONAZOLE NITRATE
     Indication: GENITAL INFECTION FUNGAL
     Dosage: ?          OTHER STRENGTH:2%;QUANTITY:4 OUNCE(S);?
     Route: 061
     Dates: start: 20181019, end: 20181019
  6. LEXAPRO [Concomitant]
     Active Substance: ESCITALOPRAM OXALATE
  7. LITHIUM. [Concomitant]
     Active Substance: LITHIUM
  8. NORVASC [Concomitant]
     Active Substance: AMLODIPINE BESYLATE
  9. BABY ASPIRIN [Concomitant]
     Active Substance: ASPIRIN
  10. VALIUM [Concomitant]
     Active Substance: DIAZEPAM

REACTIONS (3)
  - Genital burning sensation [None]
  - Application site pain [None]
  - Genital pain [None]

NARRATIVE: CASE EVENT DATE: 20181019
